FAERS Safety Report 5568080-8 (Version None)
Quarter: 2007Q4

REPORT INFORMATION
  Report Type: 
  Country: None (occurrence: None)
  Receive Date: 20071220
  Receipt Date: 20071214
  Transmission Date: 20080405
  Serious: Yes (Death, Life-Threatening)
  Sender: FDA-Public Use
  Company Number: SE-NOVOPROD-268979

PATIENT

DRUGS (15)
  1. NOVOLOG MIX 70/30 [Suspect]
     Indication: INSULIN-REQUIRING TYPE II DIABETES MELLITUS
     Dosage: 22 IU, QD
     Route: 058
     Dates: start: 20070427, end: 20070831
  2. ENAPRIL                            /00574901/ [Concomitant]
     Indication: CARDIAC FAILURE
     Dosage: 40 MG, QD
  3. ENAPRIL                            /00574901/ [Concomitant]
     Indication: HYPERTENSION
  4. ASPIRIN [Concomitant]
     Indication: THROMBOSIS PROPHYLAXIS
     Dosage: 75 MG, QD
  5. SIMVASTATIN [Concomitant]
     Indication: HYPERCHOLESTEROLAEMIA
     Dosage: 40 MG, QD
  6. BISOPROLOL [Concomitant]
     Indication: CARDIAC FAILURE
     Dosage: 15 MG, QD
  7. BISOPROLOL [Concomitant]
     Indication: HYPERTENSION
  8. IRBESARTAN [Concomitant]
     Indication: CARDIAC FAILURE
     Dosage: 300 MG, QD
     Dates: start: 20070522
  9. IRBESARTAN [Concomitant]
     Indication: HYPERTENSION
  10. DALTEPARIN SODIUM [Concomitant]
     Indication: THROMBOSIS PROPHYLAXIS
     Dosage: 5000 IU, QD
     Route: 058
     Dates: start: 20070526
  11. FELODIPINE [Concomitant]
     Indication: HYPERTENSION
     Dosage: 5 MG, QD
     Dates: start: 20070526
  12. FUROSEMID                          /00032601/ [Concomitant]
     Indication: RENAL FAILURE
     Dosage: 5 MG, QD
  13. FUROSEMID                          /00032601/ [Concomitant]
     Indication: CARDIAC FAILURE
  14. ZAROXOLYN [Concomitant]
     Indication: RENAL FAILURE
  15. ZAROXOLYN [Concomitant]
     Indication: CARDIAC FAILURE

REACTIONS (7)
  - ABDOMINAL DISTENSION [None]
  - CARDIAC FAILURE [None]
  - OEDEMA [None]
  - OEDEMA PERIPHERAL [None]
  - PROTEINURIA [None]
  - RENAL FAILURE [None]
  - RESPIRATORY DISTRESS [None]
